FAERS Safety Report 4481291-8 (Version None)
Quarter: 2004Q4

REPORT INFORMATION
  Report Type: 
  Country: None (occurrence: None)
  Receive Date: 20040923
  Receipt Date: 20030617
  Transmission Date: 20050328
  Serious: No
  Sender: FDA-Public Use
  Company Number: USA030638889

PATIENT
  Age: 78 Year
  Sex: Female

DRUGS (4)
  1. FORTEO [Suspect]
     Indication: OSTEOPOROSIS
     Dosage: 20 UG/DAY
     Dates: start: 20030530
  2. ACTONEL [Concomitant]
  3. MIACALCIN [Concomitant]
  4. SERZONE [Concomitant]

REACTIONS (7)
  - ABDOMINAL DISTENSION [None]
  - HYPOAESTHESIA [None]
  - INJECTION SITE BURNING [None]
  - INJECTION SITE HAEMORRHAGE [None]
  - INJECTION SITE REACTION [None]
  - NAUSEA [None]
  - WEIGHT INCREASED [None]
